FAERS Safety Report 7282386-6 (Version None)
Quarter: 2011Q1

REPORT INFORMATION
  Report Type: 
  Country: None (occurrence: None)
  Receive Date: 20110131
  Receipt Date: 20110103
  Transmission Date: 20110831
  Serious: Yes (Other)
  Sender: FDA-Public Use
  Company Number: ACO_21263_2011

PATIENT
  Age: 38 Year
  Sex: Female

DRUGS (3)
  1. REBIF [Suspect]
     Indication: MULTIPLE SCLEROSIS
     Dosage: 132 UG, WEEKLY;
     Dates: start: 20100831
  2. TRAMADOL HCL [Suspect]
     Indication: PRODUCT USED FOR UNKNOWN INDICATION
     Dates: end: 20100101
  3. ZANAFLEX [Suspect]
     Indication: PRODUCT USED FOR UNKNOWN INDICATION
     Dates: end: 20100101

REACTIONS (9)
  - TOOTHACHE [None]
  - BRONCHITIS [None]
  - STRESS [None]
  - CONVULSION [None]
  - FALL [None]
  - EYE INJURY [None]
  - PAIN [None]
  - INJECTION SITE PAIN [None]
  - BACK PAIN [None]
